FAERS Safety Report 4930108-3 (Version None)
Quarter: 2006Q1

REPORT INFORMATION
  Report Type: 
  Country: None (occurrence: None)
  Receive Date: 20060302
  Receipt Date: 20060119
  Transmission Date: 20060701
  Serious: Yes (Other)
  Sender: FDA-Public Use
  Company Number: 2006UW01007

PATIENT
  Age: 61 Year
  Sex: Female
  Weight: 60.5 kg

DRUGS (8)
  1. NEXIUM [Suspect]
     Indication: ULCER HAEMORRHAGE
     Route: 048
     Dates: start: 20051220, end: 20060117
  2. NEXIUM [Suspect]
     Indication: PEPTIC ULCER
     Route: 048
     Dates: start: 20051220, end: 20060117
  3. DETROL LA [Concomitant]
  4. PAXIL [Concomitant]
  5. TAMOXIFEN CITRATE [Concomitant]
  6. LIPITOR [Concomitant]
  7. HYDROCHLOROTHIAZIDE [Concomitant]
  8. CELEBREX [Concomitant]

REACTIONS (7)
  - FATIGUE [None]
  - PALPITATIONS [None]
  - PRURITUS [None]
  - RASH [None]
  - ROAD TRAFFIC ACCIDENT [None]
  - SOMNOLENCE [None]
  - YAWNING [None]
